FAERS Safety Report 16577849 (Version 1)
Quarter: 2019Q3

REPORT INFORMATION
  Report Type: Spontaneous
  Country: US (occurrence: US)
  Receive Date: 20190716
  Receipt Date: 20190716
  Transmission Date: 20191004
  Serious: Yes (Other)
  Sender: FDA-Public Use
  Company Number: US-LEXICON PHARMACEUTICALS, INC-19-1606-00743

PATIENT
  Sex: Male

DRUGS (16)
  1. RESTORIL [Concomitant]
     Active Substance: TEMAZEPAM
  2. OXYBUTYNIN CHLORIDE. [Concomitant]
     Active Substance: OXYBUTYNIN CHLORIDE
  3. ZANTAC [Concomitant]
     Active Substance: RANITIDINE HYDROCHLORIDE
  4. COMPAZINE [Concomitant]
     Active Substance: PROCHLORPERAZINE MALEATE
  5. TELOTRISTAT ETHYL [Suspect]
     Active Substance: TELOTRISTAT ETHYL
     Indication: ABDOMINAL DISTENSION
     Route: 048
     Dates: start: 20181019
  6. XELODA [Concomitant]
     Active Substance: CAPECITABINE
  7. QUESTRAN [Concomitant]
     Active Substance: CHOLESTYRAMINE
  8. LISINOPRIL. [Concomitant]
     Active Substance: LISINOPRIL
  9. RISPERIDONE. [Concomitant]
     Active Substance: RISPERIDONE
  10. NORCO [Concomitant]
     Active Substance: ACETAMINOPHEN\HYDROCODONE BITARTRATE
  11. CEFUROXIME. [Concomitant]
     Active Substance: CEFUROXIME
  12. MAGNESIUM [Concomitant]
     Active Substance: MAGNESIUM
  13. ESCITALOPRAM OXALATE. [Concomitant]
     Active Substance: ESCITALOPRAM OXALATE
  14. POTASSIUM GLUCONATE [Concomitant]
     Active Substance: POTASSIUM GLUCONATE
  15. PROSCAR [Concomitant]
     Active Substance: FINASTERIDE
  16. LOMOTIL [Concomitant]
     Active Substance: ATROPINE SULFATE\DIPHENOXYLATE HYDROCHLORIDE

REACTIONS (1)
  - Cardiac failure [Unknown]
